FAERS Safety Report 9069719 (Version 1)
Quarter: 2013Q1

REPORT INFORMATION
  Report Type: Spontaneous
  Country: US (occurrence: US)
  Receive Date: 20130215
  Receipt Date: 20130215
  Transmission Date: 20140127
  Serious: Yes (Hospitalization)
  Sender: FDA-Public Use
  Company Number: US-009507513-2009-198568-NL

PATIENT
  Sex: Female
  Weight: 174.64 kg

DRUGS (6)
  1. NUVARING [Suspect]
     Indication: CONTRACEPTION
     Dosage: UNK
     Dates: start: 20060301
  2. NUVARING [Suspect]
     Dosage: UNK
     Dates: start: 20070626, end: 20070906
  3. NUVARING [Suspect]
     Dosage: UNK
     Dates: start: 20050808
  4. PRILOSEC [Concomitant]
     Indication: PRODUCT USED FOR UNKNOWN INDICATION
     Dosage: 20 MG, QD
  5. DIOVAN HCT [Concomitant]
     Indication: HYPERTENSION
     Dosage: 160-12.5 MG
  6. MOTRIN [Concomitant]

REACTIONS (3)
  - Deep vein thrombosis [Unknown]
  - Rhinitis allergic [Unknown]
  - Sleep study abnormal [Unknown]
